FAERS Safety Report 11243357 (Version 1)
Quarter: 2015Q3

REPORT INFORMATION
  Report Type: Spontaneous
  Country: IR (occurrence: IR)
  Receive Date: 20150707
  Receipt Date: 20150707
  Transmission Date: 20151125
  Serious: Yes (Death, Hospitalization)
  Sender: FDA-Public Use
  Company Number: IR-MYLANLABS-2015M1022221

PATIENT

DRUGS (3)
  1. ACETYLCYSTEINE. [Suspect]
     Active Substance: ACETYLCYSTEINE
     Indication: PRODUCT USED FOR UNKNOWN INDICATION
     Dosage: 100G AS LOADING DOSE ADMINISTERED OVER 30 MINUTES
     Route: 041
  2. ACETYLCYSTEINE. [Suspect]
     Active Substance: ACETYLCYSTEINE
     Dosage: 9.5G MAINTENANCE DOSE ADMINISTERED OVER
     Route: 041
  3. PARACETAMOL [Suspect]
     Active Substance: ACETAMINOPHEN
     Indication: PRODUCT USED FOR UNKNOWN INDICATION
     Dosage: TOTAL DOSE: 16.25G
     Route: 048

REACTIONS (17)
  - Incorrect dose administered [Fatal]
  - Vomiting [Unknown]
  - Respiratory alkalosis [Recovering/Resolving]
  - Somnolence [Unknown]
  - Accidental overdose [Fatal]
  - Tachypnoea [Unknown]
  - Dyspnoea [Unknown]
  - Haemolytic uraemic syndrome [Fatal]
  - Acute kidney injury [Unknown]
  - Respiratory distress [Unknown]
  - Metabolic acidosis [Recovering/Resolving]
  - Hypotension [Unknown]
  - Thrombotic thrombocytopenic purpura [Unknown]
  - Haemolytic anaemia [Unknown]
  - Generalised oedema [Unknown]
  - Nausea [Unknown]
  - Agitation [Unknown]
